FAERS Safety Report 23319707 (Version 1)
Quarter: 2023Q4

REPORT INFORMATION
  Report Type: Spontaneous
  Country: JP (occurrence: JP)
  Receive Date: 20231220
  Receipt Date: 20231220
  Transmission Date: 20240109
  Serious: Yes (Hospitalization, Other)
  Sender: FDA-Public Use
  Company Number: JP-SANDOZ-SDZ2023JP012606

PATIENT
  Age: 46 Year
  Sex: Male

DRUGS (2)
  1. AMLODIPINE [Suspect]
     Active Substance: AMLODIPINE BESYLATE
     Indication: Suicide attempt
     Dosage: 1210 MG
     Route: 065
  2. CANDESARTAN [Suspect]
     Active Substance: CANDESARTAN
     Indication: Suicide attempt
     Dosage: 936 MG
     Route: 065

REACTIONS (7)
  - Renal failure [Unknown]
  - Cardiac dysfunction [Recovering/Resolving]
  - Hypotension [Unknown]
  - Distributive shock [Unknown]
  - Cardiogenic shock [Unknown]
  - Toxicity to various agents [Unknown]
  - Intentional overdose [Unknown]
